FAERS Safety Report 12956255 (Version 3)
Quarter: 2017Q1

REPORT INFORMATION
  Report Type: Spontaneous
  Country: US (occurrence: US)
  Receive Date: 20161118
  Receipt Date: 20170106
  Transmission Date: 20170428
  Serious: Yes (Death, Life-Threatening, Hospitalization)
  Sender: FDA-Public Use
  Company Number: US-JNJFOC-20161026982

PATIENT
  Sex: Female
  Weight: 52.9 kg

DRUGS (9)
  1. EMEND [Concomitant]
     Active Substance: APREPITANT
     Route: 042
  2. DECADRON [Suspect]
     Active Substance: DEXAMETHASONE
     Indication: LEIOMYOSARCOMA METASTATIC
     Route: 042
     Dates: start: 20161026
  3. METOPROLOL. [Concomitant]
     Active Substance: METOPROLOL
     Indication: TACHYCARDIA
     Route: 048
  4. ZOFRAN [Concomitant]
     Active Substance: ONDANSETRON HYDROCHLORIDE
     Route: 065
  5. XARELTO [Concomitant]
     Active Substance: RIVAROXABAN
     Indication: PULMONARY EMBOLISM
     Route: 065
  6. PEPCID [Concomitant]
     Active Substance: FAMOTIDINE
     Indication: PROPHYLAXIS
     Route: 065
  7. YONDELIS [Suspect]
     Active Substance: TRABECTEDIN
     Indication: LEIOMYOSARCOMA METASTATIC
     Dosage: TOTAL 2.265 MG OVER 24 HOURS
     Route: 042
     Dates: start: 20161026, end: 20161027
  8. METOPROLOL. [Concomitant]
     Active Substance: METOPROLOL
     Indication: PALPITATIONS
     Route: 048
  9. COLACE [Concomitant]
     Active Substance: DOCUSATE SODIUM
     Route: 048

REACTIONS (7)
  - Disseminated intravascular coagulation [Fatal]
  - Pneumonitis [Unknown]
  - Acute respiratory distress syndrome [Fatal]
  - Cardiomyopathy [Fatal]
  - Rhabdomyolysis [Unknown]
  - Acute kidney injury [Fatal]
  - Shock [Fatal]
